FAERS Safety Report 15469779 (Version 2)
Quarter: 2019Q2

REPORT INFORMATION
  Report Type: Report from Study
  Country: FR (occurrence: FR)
  Receive Date: 20181005
  Receipt Date: 20190612
  Transmission Date: 20190711
  Serious: Yes (Other)
  Sender: FDA-Public Use
  Company Number: FR-PROVELL PHARMACEUTICALS-2055725

PATIENT
  Sex: Male
  Weight: 95 kg

DRUGS (4)
  1. EUTHYRAL(NOVOTHYRAL) [Suspect]
     Active Substance: LEVOTHYROXINE SODIUM\LIOTHYRONINE SODIUM
  2. EUTHYRAL (NOVOTHYRAL) [Suspect]
     Active Substance: LEVOTHYROXINE SODIUM\LIOTHYRONINE SODIUM
  3. EUTHYRAL(NOVOTHYRAL) [Suspect]
     Active Substance: LEVOTHYROXINE SODIUM\LIOTHYRONINE SODIUM
  4. EUTHYROX [Suspect]
     Active Substance: LEVOTHYROXINE SODIUM
     Indication: AUTOIMMUNE THYROIDITIS

REACTIONS (3)
  - Vertigo [None]
  - Hyperthyroidism [None]
  - Wrong technique in product usage process [None]
